FAERS Safety Report 17193733 (Version 1)
Quarter: 2019Q4

REPORT INFORMATION
  Report Type: Report from Study
  Country: US (occurrence: US)
  Receive Date: 20191223
  Receipt Date: 20191223
  Transmission Date: 20200122
  Serious: Yes (Other)
  Sender: FDA-Public Use
  Company Number: US-BAUSCH-BL-2019-065508

PATIENT
  Age: 65 Year
  Sex: Female

DRUGS (2)
  1. XIFAXAN [Suspect]
     Active Substance: RIFAXIMIN
     Indication: HEPATIC CIRRHOSIS
     Route: 048
     Dates: start: 2018, end: 201912
  2. XIFAXAN [Suspect]
     Active Substance: RIFAXIMIN
     Dosage: STARTED APPROXIMATELY 5 DAYS AGO
     Route: 048
     Dates: start: 201912, end: 20191216

REACTIONS (5)
  - Frequent bowel movements [Unknown]
  - Therapy cessation [Unknown]
  - Intentional product use issue [Unknown]
  - Faeces discoloured [Unknown]
  - Stent placement [Unknown]

NARRATIVE: CASE EVENT DATE: 2018
